FAERS Safety Report 15664478 (Version 1)
Quarter: 2018Q4

REPORT INFORMATION
  Report Type: Spontaneous
  Country: ES (occurrence: ES)
  Receive Date: 20181128
  Receipt Date: 20181128
  Transmission Date: 20190205
  Serious: Yes (Disabling)
  Sender: FDA-Public Use
  Company Number: ES-GLAXOSMITHKLINE-ES2018212913

PATIENT
  Sex: Female
  Weight: 68 kg

DRUGS (1)
  1. AVAMYS [Suspect]
     Active Substance: FLUTICASONE FUROATE
     Indication: NASAL TURBINATE HYPERTROPHY
     Dosage: AN APPLICATION ON EITHER SIDE OF THE NOSE AND A SINGLE APPLICATION; IN TOTAL
     Route: 055
     Dates: start: 20181112, end: 20181113

REACTIONS (3)
  - Headache [Recovering/Resolving]
  - Burning sensation [Recovering/Resolving]
  - Face oedema [Recovering/Resolving]

NARRATIVE: CASE EVENT DATE: 20181112
